FAERS Safety Report 6177451-0 (Version None)
Quarter: 2009Q2

REPORT INFORMATION
  Report Type: 
  Country: None (occurrence: None)
  Receive Date: 20090501
  Receipt Date: 20090501
  Transmission Date: 20091009
  Serious: No
  Sender: FDA-Public Use
  Company Number: None

PATIENT
  Age: 48 Year
  Sex: Female
  Weight: 40 kg

DRUGS (12)
  1. KEPPRA [Suspect]
     Indication: CONVULSION PROPHYLAXIS
     Dosage: 500MG PO BID
     Route: 048
     Dates: start: 20090121, end: 20090223
  2. ACYCLOVIR [Concomitant]
  3. BACLOFEN [Concomitant]
  4. COLACE [Concomitant]
  5. FLUCONAZOLE [Concomitant]
  6. LORAZEPAM [Concomitant]
  7. NEURONTIN [Concomitant]
  8. OXYBUTYNIN CHLORIDE [Concomitant]
  9. OXYCODONE HCL [Concomitant]
  10. PROCHLORPERAZINE [Concomitant]
  11. ZANTAC [Concomitant]
  12. TEMAZEPAM [Concomitant]

REACTIONS (5)
  - AGITATION [None]
  - IRRITABILITY [None]
  - MOOD SWINGS [None]
  - PERSONALITY CHANGE [None]
  - PYREXIA [None]
